FAERS Safety Report 6648194-1 (Version None)
Quarter: 2010Q1

REPORT INFORMATION
  Report Type: 
  Country: None (occurrence: None)
  Receive Date: 20100324
  Receipt Date: 20100312
  Transmission Date: 20100710
  Serious: Yes (Other)
  Sender: FDA-Public Use
  Company Number: TR-SANOFI-AVENTIS-2010SA012292

PATIENT
  Sex: Female

DRUGS (1)
  1. TELITHROMYCIN [Suspect]
     Indication: SINUSITIS
     Route: 048
     Dates: start: 20100219, end: 20100224

REACTIONS (1)
  - HEPATIC ENZYME INCREASED [None]
